FAERS Safety Report 6724776-3 (Version None)
Quarter: 2010Q2

REPORT INFORMATION
  Report Type: 
  Country: None (occurrence: None)
  Receive Date: 20100511
  Receipt Date: 20100426
  Transmission Date: 20101027
  Serious: Yes (Other)
  Sender: FDA-Public Use
  Company Number: TRP_06209_2009

PATIENT
  Sex: Male

DRUGS (2)
  1. RIBAVARIN [Suspect]
     Indication: DRUG USE FOR UNKNOWN INDICATION
     Dosage: 2000 MG DAILY, ORAL
     Route: 048
     Dates: start: 20090406
  2. PEG-INTRON [Suspect]
     Indication: DRUG USE FOR UNKNOWN INDICATION
     Dosage: 180 UG  1X WEEK, SUBCUTANEOUS
     Route: 058
     Dates: start: 20090406

REACTIONS (2)
  - HOMICIDE [None]
  - PREGNANCY OF PARTNER [None]
